FAERS Safety Report 5334014-4 (Version None)
Quarter: 2007Q2

REPORT INFORMATION
  Report Type: 
  Country: None (occurrence: None)
  Receive Date: 20070524
  Receipt Date: 20070514
  Transmission Date: 20071010
  Serious: Yes (Other)
  Sender: FDA-Public Use
  Company Number: US-PFIZER INC-2007038679

PATIENT
  Sex: Female

DRUGS (9)
  1. LIPITOR [Suspect]
     Dosage: DAILY DOSE:10MG
  2. CARDIZEM [Concomitant]
  3. SYNTHROID [Concomitant]
  4. KLOR-CON [Concomitant]
  5. PROTONIX [Concomitant]
  6. LISINOPRIL [Concomitant]
  7. MAGNESIUM SULFATE [Concomitant]
  8. INDAPAMIDE [Concomitant]
  9. WARFARIN SODIUM [Concomitant]

REACTIONS (3)
  - MUSCLE DISORDER [None]
  - MYALGIA [None]
  - SURGERY [None]
